FAERS Safety Report 25639803 (Version 2)
Quarter: 2025Q3

REPORT INFORMATION
  Report Type: Spontaneous
  Country: US (occurrence: US)
  Receive Date: 20250804
  Receipt Date: 20250812
  Transmission Date: 20251021
  Serious: No
  Sender: DR REDDYS
  Company Number: US-DRL-USA-USA/2025/06/008977

PATIENT
  Age: 20 Year
  Sex: Female

DRUGS (1)
  1. HALOETTE [Suspect]
     Active Substance: ETHINYL ESTRADIOL\ETONOGESTREL
     Indication: Contraception
     Dosage: FREQUENCY: ONCE A MONTH, EVERY 3 WEEKS.
     Route: 065

REACTIONS (2)
  - Pain [Not Recovered/Not Resolved]
  - Device breakage [Unknown]

NARRATIVE: CASE EVENT DATE: 20250414
